FAERS Safety Report 24603651 (Version 1)
Quarter: 2024Q4

REPORT INFORMATION
  Report Type: Spontaneous
  Country: US (occurrence: None)
  Receive Date: 20241109
  Receipt Date: 20241109
  Transmission Date: 20250115
  Serious: Yes (Hospitalization)
  Sender: Public
  Company Number: None

PATIENT
  Age: 43 Year
  Sex: Female
  Weight: 72 kg

DRUGS (10)
  1. STEM CELL EXOSOME GROWTH FACTOR DERIVED OTC PRODUCTS [Suspect]
     Active Substance: STEM CELL EXOSOME GROWTH FACTOR DERIVED OTC PRODUCTS
     Indication: Skin cosmetic procedure
     Dates: start: 20241107, end: 20241108
  2. STEM CELL EXOSOME GROWTH FACTOR DERIVED OTC PRODUCTS [Suspect]
     Active Substance: STEM CELL EXOSOME GROWTH FACTOR DERIVED OTC PRODUCTS
  3. STEM CELL EXOSOME GROWTH FACTOR DERIVED OTC PRODUCTS [Suspect]
     Active Substance: STEM CELL EXOSOME GROWTH FACTOR DERIVED OTC PRODUCTS
  4. STEM CELL EXOSOME GROWTH FACTOR DERIVED OTC PRODUCTS [Suspect]
     Active Substance: STEM CELL EXOSOME GROWTH FACTOR DERIVED OTC PRODUCTS
  5. SERTRALINE [Concomitant]
     Active Substance: SERTRALINE HYDROCHLORIDE
  6. ATOMOXETINE [Concomitant]
     Active Substance: ATOMOXETINE HYDROCHLORIDE
  7. PROPRANOLOL [Concomitant]
     Active Substance: PROPRANOLOL HYDROCHLORIDE
  8. CLAITIN [Concomitant]
  9. VITAMINS [Concomitant]
     Active Substance: VITAMINS
  10. FLUTICAZONE [Concomitant]

REACTIONS (3)
  - Swelling face [None]
  - Pruritus [None]
  - Application site reaction [None]

NARRATIVE: CASE EVENT DATE: 20241109
